FAERS Safety Report 8849895 (Version 4)
Quarter: 2013Q1

REPORT INFORMATION
  Report Type: Spontaneous
  Country: DE (occurrence: DE)
  Receive Date: 20121019
  Receipt Date: 20130107
  Transmission Date: 20140127
  Serious: Yes (Other)
  Sender: FDA-Public Use
  Company Number: DE-VERTEX PHARMACEUTICAL INC.-2012-023245

PATIENT
  Age: 56 Year
  Sex: Female
  Weight: 50 kg

DRUGS (4)
  1. INCIVO [Suspect]
     Indication: PRODUCT USED FOR UNKNOWN INDICATION
     Dosage: DOSAGE FORM: TABLET
     Route: 048
     Dates: start: 20120221, end: 20120513
  2. INCIVO [Suspect]
     Indication: HEPATITIS C
  3. PEG-INTERFERON [Suspect]
     Indication: PRODUCT USED FOR UNKNOWN INDICATION
     Dosage: DOSAGE FORM: UNSPECIFIED, DOSE: 135 (UNITS NOT PROVIDED). STOPPED ON WEEK 37 (EXACT DATE UNSPECIFIDE
     Route: 058
     Dates: start: 20120221
  4. RIBAVIRIN [Suspect]
     Indication: PRODUCT USED FOR UNKNOWN INDICATION
     Dosage: DOSAGE FORM: UNSPECIFIED, STOPPED ON WEEK 37 (EXACT DATE UNSPECIFIDE)
     Route: 048
     Dates: start: 20120221

REACTIONS (4)
  - Pulmonary sarcoidosis [Not Recovered/Not Resolved]
  - Sarcoidosis [Not Recovered/Not Resolved]
  - Asthma [Unknown]
  - Seasonal allergy [Unknown]
